FAERS Safety Report 23962596 (Version 1)
Quarter: 2024Q2

REPORT INFORMATION
  Report Type: Report from Study
  Country: US (occurrence: US)
  Receive Date: 20240611
  Receipt Date: 20240611
  Transmission Date: 20240717
  Serious: Yes (Death, Other)
  Sender: FDA-Public Use
  Company Number: US-ABP-000054

PATIENT
  Age: 19 Year
  Sex: Female

DRUGS (4)
  1. ATOVAQUONE [Suspect]
     Active Substance: ATOVAQUONE
     Indication: Chemotherapy
     Route: 065
  2. CYTARABINE [Suspect]
     Active Substance: CYTARABINE
     Indication: Chemotherapy
     Route: 065
  3. DAUNORUBICIN [Suspect]
     Active Substance: DAUNORUBICIN
     Indication: Chemotherapy
     Route: 065
  4. ETOPOSIDE [Suspect]
     Active Substance: ETOPOSIDE
     Indication: Chemotherapy
     Route: 065

REACTIONS (1)
  - Death [Fatal]
